FAERS Safety Report 7909514-0 (Version None)
Quarter: 2011Q4

REPORT INFORMATION
  Report Type: 
  Country: None (occurrence: None)
  Receive Date: 20111111
  Receipt Date: 20111102
  Transmission Date: 20120403
  Serious: Yes (Hospitalization)
  Sender: FDA-Public Use
  Company Number: JP-JNJFOC-20111103223

PATIENT
  Age: 79 Year
  Sex: Male

DRUGS (6)
  1. WARFARIN SODIUM [Interacting]
     Route: 048
     Dates: start: 20080801
  2. MICONAZOLE [Suspect]
     Indication: ORAL CANDIDIASIS
     Route: 049
     Dates: start: 20110210, end: 20110227
  3. WARFARIN SODIUM [Interacting]
     Route: 048
     Dates: start: 20110325
  4. WARFARIN SODIUM [Interacting]
     Indication: ATRIAL FIBRILLATION
     Route: 048
     Dates: start: 20110309, end: 20110314
  5. WARFARIN SODIUM [Interacting]
     Route: 048
     Dates: start: 20110322
  6. MICONAZOLE [Suspect]
     Route: 049

REACTIONS (4)
  - INTERNATIONAL NORMALISED RATIO INCREASED [None]
  - DRUG INTERACTION [None]
  - DRUG INEFFECTIVE [None]
  - PURPURA [None]
